FAERS Safety Report 9507840 (Version 1)
Quarter: 2013Q3

REPORT INFORMATION
  Report Type: Spontaneous
  Country: AU (occurrence: AU)
  Receive Date: 20130909
  Receipt Date: 20130909
  Transmission Date: 20140515
  Serious: Yes (Other)
  Sender: FDA-Public Use
  Company Number: AU-PFIZER INC-2013256155

PATIENT
  Sex: Female

DRUGS (3)
  1. EFEXOR XR [Suspect]
     Dosage: 37.5 MG, UNK
     Dates: start: 20130826, end: 20130902
  2. EFEXOR XR [Suspect]
     Dosage: 56.25 MG, UNK (ONE AND A HALF CAPSULES)
     Dates: start: 20130903, end: 20130904
  3. EFEXOR XR [Suspect]
     Dosage: 75 MG, UNK
     Dates: start: 20130905

REACTIONS (8)
  - Eye haemorrhage [Unknown]
  - Eye disorder [Unknown]
  - Ocular hyperaemia [Unknown]
  - Eye pain [Unknown]
  - Depression [Unknown]
  - Apathy [Unknown]
  - Malaise [Unknown]
  - Feeling abnormal [Unknown]
